FAERS Safety Report 11190099 (Version 1)
Quarter: 2015Q2

REPORT INFORMATION
  Report Type: Spontaneous
  Country: US (occurrence: None)
  Receive Date: 20150601
  Receipt Date: 20150601
  Transmission Date: 20150821
  Serious: Yes (Hospitalization, Other)
  Sender: FDA-Public Use
  Company Number: CIP11000514

PATIENT
  Age: 79 Year
  Sex: Female
  Weight: 65 kg

DRUGS (15)
  1. FOSAMAX [Suspect]
     Active Substance: ALENDRONATE SODIUM
     Indication: OSTEOPOROSIS
     Dates: start: 200112, end: 200503
  2. LUNESTA [Concomitant]
     Active Substance: ESZOPICLONE
  3. CLINDAMYCIN [Concomitant]
     Active Substance: CLINDAMYCIN\CLINDAMYCIN PHOSPHATE
  4. VITAMIN E /00110501/ (TOCOPHEROL) [Concomitant]
  5. LOPID [Concomitant]
     Active Substance: GEMFIBROZIL
  6. CALCIUM WITH VITAMIN D /00944201/ (CALCIUM CARBONATE, COLECALCIFEROL) [Concomitant]
  7. ACTONEL [Suspect]
     Active Substance: RISEDRONATE SODIUM
     Route: 048
     Dates: end: 20070312
  8. ZETIA [Concomitant]
     Active Substance: EZETIMIBE
  9. IBUPROFEN. [Concomitant]
     Active Substance: IBUPROFEN
  10. ACTONEL [Suspect]
     Active Substance: RISEDRONATE SODIUM
     Indication: OSTEOPOROSIS
     Route: 048
     Dates: start: 20050308, end: 201110
  11. DIDRONEL [Suspect]
     Active Substance: ETIDRONATE DISODIUM
     Indication: OSTEOPOROSIS
     Dosage: CYCLIC, ORAL
     Route: 048
     Dates: start: 199812, end: 20000719
  12. MULTIVITAMIN /00097801/ (ASCORBIC ACID, CALCIUM PANTOTHENATE, ERGOCALCIFEROL, NICOTINAMIDE, PYRIDOXINE HYDROCHLORIDE, RETINAL, RIBOFLAVIN, THIAMINE HYDROCHLORIDE) [Concomitant]
  13. HYDROCODONE BITARTRATE AND ACETAMINOPHEN (HYDROCODONE BITARTRATE, PARACETAMOL) [Concomitant]
  14. OMEGA 3 FISH OIL [Concomitant]
     Active Substance: FISH OIL\OMEGA-3 FATTY ACIDS
  15. FLAXSEED OIL (LINUM USITATISSIMUM SEED OIL) [Concomitant]

REACTIONS (8)
  - Femur fracture [None]
  - Pubis fracture [None]
  - Pelvic pain [None]
  - Comminuted fracture [None]
  - Fall [None]
  - Oesophagitis [None]
  - Device issue [None]
  - Arthralgia [None]

NARRATIVE: CASE EVENT DATE: 20061113
